FAERS Safety Report 6692494-6 (Version None)
Quarter: 2010Q2

REPORT INFORMATION
  Report Type: 
  Country: None (occurrence: None)
  Receive Date: 20100422
  Receipt Date: 20100414
  Transmission Date: 20101027
  Serious: Yes (Hospitalization, Disabling)
  Sender: FDA-Public Use
  Company Number: B0621423A

PATIENT
  Sex: Female

DRUGS (5)
  1. PAROXETINE HCL [Suspect]
     Indication: DRUG USE FOR UNKNOWN INDICATION
     Dosage: 40MG PER DAY
     Route: 048
     Dates: end: 20080712
  2. AMLODIN [Suspect]
     Indication: HYPERTENSION
     Dosage: 5MG PER DAY
  3. LOXOPROFEN SODIUM [Concomitant]
     Indication: BACK PAIN
     Dosage: 60MG PER DAY
     Route: 048
     Dates: end: 20080702
  4. RENIVEZE [Concomitant]
     Indication: HYPERTENSION
     Dosage: 5MG PER DAY
     Route: 048
  5. UNKNOWN DRUG [Concomitant]
     Indication: ANGINA PECTORIS
     Dosage: 40MG PER DAY
     Route: 062

REACTIONS (1)
  - PARKINSONISM [None]
